FAERS Safety Report 20667480 (Version 1)
Quarter: 2022Q2

REPORT INFORMATION
  Report Type: Spontaneous
  Country: US (occurrence: US)
  Receive Date: 20220404
  Receipt Date: 20220404
  Transmission Date: 20220721
  Serious: No
  Sender: FDA-Public Use
  Company Number: US-BRISTOL-MYERS SQUIBB COMPANY-2022-012244

PATIENT
  Age: 59 Year
  Sex: Female

DRUGS (1)
  1. REVLIMID [Suspect]
     Active Substance: LENALIDOMIDE
     Indication: Diffuse large B-cell lymphoma
     Dosage: DAILY?FREQUENCY - 21 DAYS ON AND 7 DAYS OFF.
     Route: 048
     Dates: start: 20211103

REACTIONS (3)
  - Fatigue [Unknown]
  - Asthenia [Unknown]
  - Depression [Unknown]
